APPROVED DRUG PRODUCT: FIRMAGON
Active Ingredient: DEGARELIX ACETATE
Strength: EQ 80MG BASE/VIAL
Dosage Form/Route: POWDER;SUBCUTANEOUS
Application: N022201 | Product #001
Applicant: FERRING PHARMACEUTICALS INC
Approved: Dec 24, 2008 | RLD: Yes | RS: No | Type: RX

PATENTS:
Patent 9579359 | Expires: Feb 10, 2029
Patent 12514898 | Expires: Feb 20, 2029
Patent 10695398 | Expires: Apr 27, 2032
Patent 10973870 | Expires: Feb 10, 2029
Patent 9415085 | Expires: Apr 27, 2032
Patent 10729739 | Expires: Feb 10, 2029
Patent 11766468 | Expires: Apr 27, 2032
Patent 11826397 | Expires: Apr 27, 2032